FAERS Safety Report 7691794-0 (Version None)
Quarter: 2011Q3

REPORT INFORMATION
  Report Type: 
  Country: None (occurrence: None)
  Receive Date: 20110818
  Receipt Date: 20110804
  Transmission Date: 20111222
  Serious: Yes (Life-Threatening, Hospitalization)
  Sender: FDA-Public Use
  Company Number: DE-UCBSA-038491

PATIENT
  Sex: Male
  Weight: 95 kg

DRUGS (2)
  1. VIMPAT [Suspect]
     Indication: STATUS EPILEPTICUS
     Dosage: 400 MG
     Route: 042
     Dates: start: 20110704, end: 20110705
  2. VIMPAT [Suspect]
     Dosage: 600 MG
     Route: 042
     Dates: start: 20110705

REACTIONS (1)
  - STATUS EPILEPTICUS [None]
